FAERS Safety Report 5642927-9 (Version None)
Quarter: 2008Q1

REPORT INFORMATION
  Report Type: 
  Country: None (occurrence: None)
  Receive Date: 20080228
  Receipt Date: 20080226
  Transmission Date: 20080703
  Serious: Yes (Death)
  Sender: FDA-Public Use
  Company Number: 940614-008030257

PATIENT
  Age: 42 Year
  Sex: Female

DRUGS (2)
  1. HALDOL [Suspect]
     Indication: MAJOR DEPRESSION
     Route: 041
  2. CLORAZEPATE [Concomitant]

REACTIONS (1)
  - PULMONARY OEDEMA [None]
